FAERS Safety Report 5259263-5 (Version None)
Quarter: 2007Q1

REPORT INFORMATION
  Report Type: 
  Country: None (occurrence: None)
  Receive Date: 20070308
  Receipt Date: 20070301
  Transmission Date: 20070707
  Serious: Yes (Disabling)
  Sender: FDA-Public Use
  Company Number: 2007PK00557

PATIENT
  Age: 42 Year
  Sex: Male
  Weight: 60 kg

DRUGS (10)
  1. BELOC-ZOK RETARD [Suspect]
     Route: 048
  2. KEPPRA [Interacting]
     Route: 048
     Dates: start: 20061123, end: 20061229
  3. LORAZEPAM [Interacting]
     Route: 048
  4. PRAZINE [Interacting]
     Route: 048
  5. SUBUTEX [Interacting]
     Route: 048
  6. DORMICUM [Interacting]
     Route: 048
  7. ROHYPNOL [Interacting]
     Route: 048
  8. LISITRIL [Interacting]
     Route: 048
     Dates: start: 20060301, end: 20061213
  9. PLAVIX [Interacting]
     Route: 048
  10. SELIPRAN [Concomitant]
     Route: 048

REACTIONS (3)
  - DRUG INTERACTION [None]
  - HALLUCINATION [None]
  - PARANOIA [None]
